FAERS Safety Report 5404749-3 (Version None)
Quarter: 2007Q3

REPORT INFORMATION
  Report Type: 
  Country: None (occurrence: None)
  Receive Date: 20070801
  Receipt Date: 20070720
  Transmission Date: 20080115
  Serious: Yes (Hospitalization)
  Sender: FDA-Public Use
  Company Number: B0481074A

PATIENT
  Age: 28 Year
  Sex: Female

DRUGS (13)
  1. LITHIUM SALT [Suspect]
     Indication: PSYCHOTIC DISORDER
  2. CIPROFLOXACIN HCL         (FORMULATION UNKNOWN) (GENERIC) [Suspect]
  3. ZIPRASIDONE HCL         (FORMULATION UNKNOWN) [Suspect]
     Indication: PSYCHOTIC DISORDER
  4. FLUCONAZOLE [Suspect]
  5. TRAZODONE                   (FORMULATION UNKNOWN) [Suspect]
  6. FLUOXETINE [Suspect]
  7. METOPROLOL                 (FORMULATION UNKNOWN) [Suspect]
     Dosage: 50 MG / TWICE PER DAY /
  8. PREDNISONE TAB [Concomitant]
  9. LEVOTHYROXINE SODIUM [Concomitant]
  10. CLONAZEPAM [Concomitant]
  11. LANSOPRAZOLE [Concomitant]
  12. OLANZAPINE [Concomitant]
  13. LEVETIRACETAM [Concomitant]

REACTIONS (19)
  - BLOOD MAGNESIUM INCREASED [None]
  - CHEST PAIN [None]
  - CONFUSIONAL STATE [None]
  - DEHYDRATION [None]
  - DELIRIUM [None]
  - DISTURBANCE IN ATTENTION [None]
  - DRUG INEFFECTIVE [None]
  - DRUG INTERACTION [None]
  - HAEMODIALYSIS [None]
  - HYPOKALAEMIA [None]
  - HYPOTENSION [None]
  - MENTAL STATUS CHANGES [None]
  - ORAL INTAKE REDUCED [None]
  - PSYCHOTIC DISORDER [None]
  - RENAL FAILURE [None]
  - THERAPEUTIC AGENT TOXICITY [None]
  - TORSADE DE POINTES [None]
  - TREMOR [None]
  - VENTRICULAR TACHYCARDIA [None]
